FAERS Safety Report 9800955 (Version 1)
Quarter: 2014Q1

REPORT INFORMATION
  Report Type: Spontaneous
  Country: DE (occurrence: DE)
  Receive Date: 20140107
  Receipt Date: 20140107
  Transmission Date: 20141002
  Serious: Yes (Life-Threatening, Hospitalization, Other)
  Sender: FDA-Public Use
  Company Number: DE-BRISTOL-MYERS SQUIBB COMPANY-19940667

PATIENT
  Age: 83 Year
  Sex: Female
  Weight: 61 kg

DRUGS (3)
  1. ELIQUIS [Suspect]
  2. VERAPAMIL [Interacting]
  3. METFORMIN [Concomitant]

REACTIONS (3)
  - Subdural haemorrhage [Not Recovered/Not Resolved]
  - Drug interaction [Unknown]
  - Fall [Unknown]
